FAERS Safety Report 7792946-1 (Version None)
Quarter: 2011Q4

REPORT INFORMATION
  Report Type: 
  Country: None (occurrence: None)
  Receive Date: 20111003
  Receipt Date: 20110921
  Transmission Date: 20120403
  Serious: Yes (Other)
  Sender: FDA-Public Use
  Company Number: PHEH2011US04081

PATIENT
  Sex: Female

DRUGS (2)
  1. ATELVIA [Suspect]
     Dosage: UNK
     Route: 065
  2. GLEEVEC [Suspect]
     Indication: CHRONIC MYELOID LEUKAEMIA
     Dosage: 400 MG, DAILY
     Route: 048
     Dates: start: 20110630

REACTIONS (3)
  - PELVIC FRACTURE [None]
  - PAIN [None]
  - PYREXIA [None]
